FAERS Safety Report 8811146 (Version 3)
Quarter: 2012Q4

REPORT INFORMATION
  Report Type: 
  Country: US (occurrence: US)
  Receive Date: 20120927
  Receipt Date: 20121116
  Transmission Date: 20130627
  Serious: Yes (Hospitalization)
  Sender: FDA-Public Use
  Company Number: US-BAYER-2012-098424

PATIENT
  Age: 27 Year
  Sex: Female
  Weight: 96.6 kg

DRUGS (9)
  1. YAZ [Suspect]
     Indication: MENSTRUAL CYCLE MANAGEMENT
     Dosage: UNK
     Dates: start: 200711, end: 200805
  2. YAZ [Suspect]
     Indication: PREMENSTRUAL DYSPHORIC DISORDER
  3. YAZ [Suspect]
     Indication: PREMENSTRUAL SYNDROME
  4. DARVOCET [Concomitant]
  5. ANALGESICS [Concomitant]
  6. DILAUDID [Concomitant]
     Indication: PAIN
  7. MORPHINE [Concomitant]
     Indication: PAIN
  8. ANTIBIOTICS [Concomitant]
     Dosage: UNK UNK, PRN
  9. NSAID^S [Concomitant]
     Dosage: UNK UNK, PRN

REACTIONS (21)
  - Pulmonary embolism [None]
  - Metrorrhagia [None]
  - Depression [None]
  - Anxiety [None]
  - Fear [None]
  - Skin discolouration [None]
  - Chest pain [None]
  - Haemoptysis [None]
  - Muscular weakness [None]
  - Dyspnoea at rest [None]
  - Panic reaction [None]
  - Pain in extremity [None]
  - Total lung capacity decreased [None]
  - Pain [None]
  - Injury [None]
  - General physical health deterioration [None]
  - Anhedonia [None]
  - Emotional distress [None]
  - Pain [None]
  - Anxiety [None]
  - Mental disorder [None]
